FAERS Safety Report 13375039 (Version 2)
Quarter: 2017Q2

REPORT INFORMATION
  Report Type: Spontaneous
  Country: US (occurrence: US)
  Receive Date: 20170327
  Receipt Date: 20170421
  Transmission Date: 20170830
  Serious: Yes (Hospitalization)
  Sender: FDA-Public Use
  Company Number: US-LUNDBECK-DKLU2028274

PATIENT
  Age: 1 Year
  Sex: Male

DRUGS (2)
  1. SABRIL [Suspect]
     Active Substance: VIGABATRIN
     Indication: INFANTILE SPASMS
     Dosage: 12 ML=600 MG
     Route: 048
     Dates: start: 20160926
  2. SABRIL [Suspect]
     Active Substance: VIGABATRIN
     Dosage: 12 ML=600 MG
     Route: 048
     Dates: start: 20160927

REACTIONS (4)
  - Failure to thrive [Unknown]
  - Haematemesis [Unknown]
  - Constipation [Unknown]
  - Somnolence [Unknown]

NARRATIVE: CASE EVENT DATE: 201703
